FAERS Safety Report 10489608 (Version 1)
Quarter: 2014Q3

REPORT INFORMATION
  Report Type: Spontaneous
  Country: US (occurrence: None)
  Receive Date: 20140908
  Receipt Date: 20140908
  Transmission Date: 20150326
  Serious: Yes (Hospitalization)
  Sender: FDA-Public Use
  Company Number: 402532

PATIENT
  Sex: Male

DRUGS (4)
  1. LEVEMIR FLEXPEN ( INSULIN DETEMIR) SOLUTION FOR INJECTION [Concomitant]
  2. OXYCODONE/ACETAMINOPHEN ( OXYCODONE HYDROCHLORIDE, PARACETAMOL) [Concomitant]
  3. NOVOTWIST [Concomitant]
  4. VICTOZA [Suspect]
     Active Substance: LIRAGLUTIDE
     Indication: PRODUCT USED FOR UNKNOWN INDICATION
     Route: 058

REACTIONS (1)
  - Pancreatitis [None]
